FAERS Safety Report 7446609-2 (Version None)
Quarter: 2011Q2

REPORT INFORMATION
  Report Type: 
  Country: None (occurrence: None)
  Receive Date: 20110429
  Receipt Date: 20110420
  Transmission Date: 20111010
  Serious: Yes (Hospitalization)
  Sender: FDA-Public Use
  Company Number: PHHY2011NL33771

PATIENT
  Age: 70 Year
  Sex: Female

DRUGS (12)
  1. PANTOPRAZOLE [Concomitant]
     Dosage: 40 MG, BID
  2. SIMVASTATIN [Concomitant]
     Dosage: 40 MG, QD
  3. PARACETAMOL [Concomitant]
     Dosage: 1000 MG, QID
  4. ACETYLSALICYLIC ACID SRT [Concomitant]
     Dosage: 80 MG, QD
  5. ONDANSETRON [Concomitant]
     Dosage: 4 MG, PRN (3 DAILY DOSES MAXIMUM)
  6. ENOXAPARIN [Concomitant]
     Route: 058
  7. NOVORAPID [Concomitant]
  8. FUROSEMIDE [Concomitant]
     Dosage: 40 MG, QD
  9. MORPHINE [Concomitant]
     Dosage: 7.5 MG, PRN (6 DAILY DOSES 7.5 MG MAXIMUM)
  10. INSULIN [Concomitant]
  11. SOTALOL HCL [Suspect]
     Indication: ARRHYTHMIA
     Dosage: 1 DF, BID
     Route: 048
  12. FOSINOPRIL SODIUM [Concomitant]
     Dosage: 20 MG, QD

REACTIONS (3)
  - BLOOD POTASSIUM DECREASED [None]
  - VENTRICULAR FIBRILLATION [None]
  - ELECTROCARDIOGRAM QT PROLONGED [None]
